FAERS Safety Report 9677967 (Version 2)
Quarter: 2015Q2

REPORT INFORMATION
  Report Type: Spontaneous
  Country: CA (occurrence: CA)
  Receive Date: 20131108
  Receipt Date: 20150522
  Transmission Date: 20150821
  Serious: Yes (Death, Other)
  Sender: FDA-Public Use
  Company Number: CA-BAYER-2013-133683

PATIENT
  Age: 18 Year
  Sex: Female

DRUGS (1)
  1. YASMIN [Suspect]
     Active Substance: DROSPIRENONE\ETHINYL ESTRADIOL

REACTIONS (13)
  - Hyperglycaemia [None]
  - Pulmonary embolism [None]
  - Upper gastrointestinal haemorrhage [None]
  - Thrombosis [None]
  - Back pain [None]
  - Dyspnoea [None]
  - Pulmonary oedema [None]
  - Spinal pain [None]
  - Disseminated intravascular coagulation [Fatal]
  - Gastrointestinal haemorrhage [None]
  - Pulmonary congestion [None]
  - Cyanosis [None]
  - Fall [Fatal]

NARRATIVE: CASE EVENT DATE: 20100305
